FAERS Safety Report 4736273-5 (Version None)
Quarter: 2005Q3

REPORT INFORMATION
  Report Type: 
  Country: None (occurrence: None)
  Receive Date: 20050804
  Receipt Date: 20050725
  Transmission Date: 20060218
  Serious: Yes (Hospitalization)
  Sender: FDA-Public Use
  Company Number: 2005BI011469

PATIENT
  Age: 48 Year
  Sex: Female

DRUGS (10)
  1. AVONEX [Suspect]
     Indication: MULTIPLE SCLEROSIS
     Dosage: 30 UG; QW; IM
     Route: 030
     Dates: start: 20000606, end: 20021001
  2. AVONEX [Suspect]
     Indication: MULTIPLE SCLEROSIS
     Dosage: 30 UG; QW; IM
     Route: 030
     Dates: start: 20030501, end: 20040922
  3. INTRATHECAL BACLOFEN [Concomitant]
  4. DITROPAN [Concomitant]
  5. DIOVAN [Concomitant]
  6. LASIX [Concomitant]
  7. NEXIUM [Concomitant]
  8. FOSAMAX [Concomitant]
  9. STEROIDS [Concomitant]
  10. VALIUM [Concomitant]

REACTIONS (2)
  - ASEPTIC NECROSIS BONE [None]
  - GROIN PAIN [None]
